FAERS Safety Report 15003142 (Version 1)
Quarter: 2018Q2

REPORT INFORMATION
  Report Type: Report from Study
  Country: None (occurrence: RO)
  Receive Date: 20180612
  Receipt Date: 20180612
  Transmission Date: 20180711
  Serious: Yes (Hospitalization, Other)
  Sender: FDA-Public Use
  Company Number: RO-ABBVIE-18K-135-2385189-00

PATIENT
  Sex: Female

DRUGS (6)
  1. TERTENSIF [Concomitant]
     Active Substance: INDAPAMIDE
     Indication: ANGINA PECTORIS
     Route: 048
     Dates: end: 20180513
  2. ASPIRIN CARDIO [Concomitant]
     Active Substance: ASPIRIN
     Indication: ANGINA PECTORIS
     Route: 048
     Dates: end: 20180513
  3. ATACAND [Concomitant]
     Active Substance: CANDESARTAN CILEXETIL
     Indication: ISCHAEMIC CARDIOMYOPATHY
     Route: 048
     Dates: end: 20180513
  4. NEBILET [Concomitant]
     Active Substance: NEBIVOLOL
     Indication: ISCHAEMIC CARDIOMYOPATHY
     Route: 048
     Dates: end: 20180513
  5. CLARITINE [Concomitant]
     Active Substance: LORATADINE
     Indication: PRURITUS
     Dosage: AS NEEDED
     Route: 048
  6. HUMIRA [Suspect]
     Active Substance: ADALIMUMAB
     Indication: PSORIASIS
     Route: 058
     Dates: start: 20130115, end: 20180329

REACTIONS (7)
  - Thyroid mass [Not Recovered/Not Resolved]
  - Chest pain [Recovering/Resolving]
  - Tympanoplasty [Recovered/Resolved]
  - Biliary cyst [Not Recovered/Not Resolved]
  - Hepatic cyst [Not Recovered/Not Resolved]
  - Hepatic steatosis [Not Recovered/Not Resolved]
  - Renal cyst [Not Recovered/Not Resolved]

NARRATIVE: CASE EVENT DATE: 2015
